FAERS Safety Report 11267251 (Version 4)
Quarter: 2015Q4

REPORT INFORMATION
  Report Type: Report from Study
  Country: DE (occurrence: DE)
  Receive Date: 20150713
  Receipt Date: 20151001
  Transmission Date: 20160304
  Serious: Yes (Other)
  Sender: FDA-Public Use
  Company Number: DE-GILEAD-2015-0162437

PATIENT
  Age: 69 Year
  Sex: Female
  Weight: 68 kg

DRUGS (6)
  1. COPEGUS [Suspect]
     Active Substance: RIBAVIRIN
     Indication: CHRONIC HEPATITIS C
     Dosage: 1000 MG, QD
     Route: 048
     Dates: start: 20150512, end: 20150522
  2. BISOPROLOL [Concomitant]
     Active Substance: BISOPROLOL
  3. ASS 100 [Concomitant]
     Active Substance: ASPIRIN
  4. LEDIPASVIR/SOFOSBUVIR [Suspect]
     Active Substance: LEDIPASVIR\SOFOSBUVIR
     Indication: CHRONIC HEPATITIS C
     Dosage: 1 DF, QD
     Route: 048
     Dates: start: 20150512
  5. PANTOZOL [Concomitant]
     Active Substance: PANTOPRAZOLE SODIUM
  6. VALSACOR [Concomitant]
     Active Substance: VALSARTAN

REACTIONS (4)
  - Arrhythmia [Recovered/Resolved]
  - Arrhythmia [Recovering/Resolving]
  - Dyspepsia [Not Recovered/Not Resolved]
  - Fatigue [Not Recovered/Not Resolved]

NARRATIVE: CASE EVENT DATE: 20150524
